FAERS Safety Report 7439918-4 (Version None)
Quarter: 2011Q2

REPORT INFORMATION
  Report Type: 
  Country: None (occurrence: None)
  Receive Date: 20110427
  Receipt Date: 20110413
  Transmission Date: 20111010
  Serious: Yes (Other)
  Sender: FDA-Public Use
  Company Number: US-WATSON-2011-03817

PATIENT
  Age: 16 Year
  Sex: Male

DRUGS (4)
  1. BLEOMYCIN [Suspect]
     Indication: TESTIS CANCER
     Dosage: UNK
  2. DEXAMETHASONE [Suspect]
     Indication: PRODUCT USED FOR UNKNOWN INDICATION
     Dosage: UNK
  3. CISPLATIN [Suspect]
     Indication: TESTIS CANCER
     Dosage: UNK
  4. ETOPOSIDE [Suspect]
     Indication: TESTIS CANCER
     Dosage: UNK

REACTIONS (1)
  - PSYCHOTIC DISORDER [None]
